FAERS Safety Report 8720187 (Version 2)
Quarter: 2012Q4

REPORT INFORMATION
  Report Type: 
  Country: US (occurrence: US)
  Receive Date: 20120813
  Receipt Date: 20121029
  Transmission Date: 20130627
  Serious: Yes (Hospitalization)
  Sender: FDA-Public Use
  Company Number: US-BAYER-2012-081260

PATIENT
  Age: 23 Year
  Sex: Female
  Weight: 52.15 kg

DRUGS (17)
  1. YAZ [Suspect]
     Indication: CONTRACEPTION
     Dosage: UNK
     Dates: start: 2005, end: 2012
  2. OCELLA [Suspect]
     Indication: CONTRACEPTION
     Dosage: UNK
     Dates: start: 2005, end: 2012
  3. ANTIMIGRAINE PREPARATIONS [Concomitant]
     Dosage: UNK
     Dates: start: 2005, end: 2012
  4. PEPTO-BISMOL [Concomitant]
     Indication: ABDOMINAL PAIN
     Dosage: Over 3 days
     Dates: start: 201208
  5. ADVIL [Concomitant]
     Indication: HEADACHE
     Dosage: 2 pills
     Dates: start: 201007
  6. SUMATRIPTAN SUCCINATE [Concomitant]
     Dosage: 50 mg, UNK
  7. SUMATRIPTAN SUCCINATE [Concomitant]
     Dosage: 6 mg, UNK
  8. AMITRIPTYLINE HCL W/CHLORDIAZEPOXIDE HCL [Concomitant]
     Dosage: 12.5-5
  9. NASONEX [Concomitant]
  10. XYZAL [Concomitant]
     Dosage: 5 mg, UNK
  11. AZITHROMYCIN [Concomitant]
     Dosage: 250 mg, UNK
  12. OMEPRAZOLE [Concomitant]
     Dosage: 40 mg, UNK
  13. IMITREX [Concomitant]
     Indication: MIGRAINE HEADACHE
     Dosage: OD When necessary
  14. LIMBITROL [Concomitant]
  15. ZYRTEC [Concomitant]
  16. ACIPHEX [Concomitant]
  17. ASPIRIN [Concomitant]
     Indication: CHRONIC HEADACHES

REACTIONS (10)
  - Cholecystitis [None]
  - Biliary dyskinesia [None]
  - Pain [None]
  - Injury [None]
  - Pain [None]
  - Abdominal pain upper [None]
  - Decreased appetite [None]
  - Weight decreased [None]
  - Abdominal pain [None]
  - Dyspepsia [None]
